FAERS Safety Report 6852716-5 (Version None)
Quarter: 2010Q3

REPORT INFORMATION
  Report Type: 
  Country: None (occurrence: None)
  Receive Date: 20100717
  Receipt Date: 20071120
  Transmission Date: 20110219
  Serious: No
  Sender: FDA-Public Use
  Company Number: US-PFIZER INC-2007099849

PATIENT
  Age: 22 Year
  Sex: Female
  Weight: 54.4 kg

DRUGS (2)
  1. CHANTIX [Suspect]
     Indication: SMOKING CESSATION THERAPY
     Route: 048
     Dates: start: 20071106
  2. ORAL CONTRACEPTIVE NOS [Concomitant]

REACTIONS (3)
  - AGITATION [None]
  - INITIAL INSOMNIA [None]
  - NAUSEA [None]
